FAERS Safety Report 13033778 (Version 2)
Quarter: 2017Q1

REPORT INFORMATION
  Report Type: Report from Study
  Country: US (occurrence: US)
  Receive Date: 20161216
  Receipt Date: 20170208
  Transmission Date: 20170428
  Serious: Yes (Hospitalization, Other)
  Sender: FDA-Public Use
  Company Number: US-GILEAD-2016-0245252

PATIENT
  Age: 51 Year
  Sex: Female

DRUGS (3)
  1. ADEMPAS [Suspect]
     Active Substance: RIOCIGUAT
     Indication: PULMONARY HYPERTENSION
     Route: 065
     Dates: start: 20161024
  2. OXYGEN. [Concomitant]
     Active Substance: OXYGEN
  3. AMBRISENTAN [Suspect]
     Active Substance: AMBRISENTAN
     Indication: PULMONARY HYPERTENSION
     Dosage: 10 MG, QD
     Route: 065
     Dates: start: 20160429

REACTIONS (7)
  - Catheterisation cardiac [Unknown]
  - Dyspnoea [Not Recovered/Not Resolved]
  - Oxygen consumption [Unknown]
  - Blood pressure decreased [Unknown]
  - Chest pain [Not Recovered/Not Resolved]
  - Walking aid user [Unknown]
  - Psychotic disorder [Unknown]
